FAERS Safety Report 26145323 (Version 2)
Quarter: 2025Q4

REPORT INFORMATION
  Report Type: Report from Study
  Country: US (occurrence: US)
  Receive Date: 20251211
  Receipt Date: 20251215
  Transmission Date: 20260118
  Serious: Yes (Hospitalization)
  Sender: OTSUKA
  Company Number: US-MMM-Otsuka-2FCG4DO3

PATIENT
  Sex: Male

DRUGS (1)
  1. TOLVAPTAN [Suspect]
     Active Substance: TOLVAPTAN
     Indication: Congenital cystic kidney disease
     Dosage: UNK
     Route: 065

REACTIONS (4)
  - Nausea [Unknown]
  - Decreased appetite [Unknown]
  - Polyuria [Unknown]
  - Thirst [Unknown]

NARRATIVE: CASE EVENT DATE: 20251112
